FAERS Safety Report 7297197-5 (Version None)
Quarter: 2011Q1

REPORT INFORMATION
  Report Type: 
  Country: None (occurrence: None)
  Receive Date: 20110216
  Receipt Date: 20110210
  Transmission Date: 20110831
  Serious: Yes (Other)
  Sender: FDA-Public Use
  Company Number: JP-JNJFOC-20110105788

PATIENT
  Age: 32 Year
  Sex: Female

DRUGS (13)
  1. ARIPIPRAZOLE [Concomitant]
     Indication: ILL-DEFINED DISORDER
     Route: 048
  2. QUETIAPINE FUMARATE [Concomitant]
     Dosage: ADDITIONAL 50 MG
     Route: 048
  3. RISPERDAL [Suspect]
     Indication: SCHIZOPHRENIA
     Route: 048
  4. VALPROATE SODIUM [Concomitant]
     Route: 048
  5. RISPERDAL [Suspect]
     Route: 048
  6. QUETIAPINE FUMARATE [Concomitant]
     Route: 048
  7. QUETIAPINE FUMARATE [Concomitant]
     Route: 048
  8. RISPERDAL [Suspect]
     Route: 048
  9. RISPERDAL [Suspect]
     Route: 048
  10. RISPERDAL [Suspect]
     Route: 048
  11. QUETIAPINE FUMARATE [Concomitant]
     Indication: ILL-DEFINED DISORDER
     Route: 048
  12. QUETIAPINE FUMARATE [Concomitant]
     Route: 048
  13. VALPROATE SODIUM [Concomitant]
     Indication: SCHIZOPHRENIA
     Route: 048

REACTIONS (3)
  - AMENORRHOEA [None]
  - BLOOD PROLACTIN INCREASED [None]
  - DYSLALIA [None]
